FAERS Safety Report 20027644 (Version 2)
Quarter: 2021Q4

REPORT INFORMATION
  Report Type: Spontaneous
  Country: US (occurrence: US)
  Receive Date: 20211103
  Receipt Date: 20211120
  Transmission Date: 20220304
  Serious: Yes (Hospitalization, Other)
  Sender: FDA-Public Use
  Company Number: US-MLMSERVICE-20211014-3164647-1

PATIENT
  Age: 70 Year
  Sex: Male

DRUGS (1)
  1. DEXAMETHASONE [Suspect]
     Active Substance: DEXAMETHASONE
     Indication: COVID-19 pneumonia
     Dosage: UNK (TAPER)
     Route: 065

REACTIONS (6)
  - Adrenal suppression [Recovered/Resolved]
  - Blood aldosterone decreased [Recovered/Resolved]
  - Hyponatraemia [Recovered/Resolved]
  - Hyperkalaemia [Recovered/Resolved]
  - Hypothalamic pituitary adrenal axis suppression [Recovered/Resolved]
  - Off label use [Unknown]
